FAERS Safety Report 16327888 (Version 1)
Quarter: 2019Q2

REPORT INFORMATION
  Report Type: Spontaneous
  Country: US (occurrence: US)
  Receive Date: 20190518
  Receipt Date: 20190518
  Transmission Date: 20190711
  Serious: Yes (Hospitalization, Other)
  Sender: FDA-Public Use
  Company Number: US-SUN PHARMACEUTICAL INDUSTRIES LTD-2018R1-193432

PATIENT
  Age: 31 Year
  Sex: Female

DRUGS (3)
  1. PERAMPANEL [Concomitant]
     Active Substance: PERAMPANEL
     Indication: SEIZURE
     Dosage: 6 MILLIGRAM, DAILY (AT BEDTIME)
     Route: 065
  2. LACOSAMIDE. [Concomitant]
     Active Substance: LACOSAMIDE
     Indication: SEIZURE
     Dosage: 200 MG IN MORNING AND 300 MG AT BEDTIME
     Route: 065
  3. DEXAMETHASONE. [Suspect]
     Active Substance: DEXAMETHASONE
     Indication: STEROID THERAPY
     Dosage: 4 MILLIGRAM, QID
     Route: 065

REACTIONS (3)
  - Hyperglycaemia [Recovered/Resolved]
  - Partial seizures [Recovered/Resolved]
  - Status epilepticus [Recovered/Resolved]
